FAERS Safety Report 8494033-6 (Version None)
Quarter: 2012Q3

REPORT INFORMATION
  Report Type: 
  Country: None (occurrence: None)
  Receive Date: 20120709
  Receipt Date: 20120628
  Transmission Date: 20120928
  Serious: No
  Sender: FDA-Public Use
  Company Number: US-BIOGENIDEC-2012BI023089

PATIENT
  Sex: Female

DRUGS (2)
  1. AVONEX [Suspect]
     Indication: MULTIPLE SCLEROSIS
     Route: 030
     Dates: start: 20000601
  2. AVONEX [Suspect]
     Route: 030
     Dates: start: 20000701

REACTIONS (5)
  - SURGERY [None]
  - FEELING HOT [None]
  - COORDINATION ABNORMAL [None]
  - PARAESTHESIA [None]
  - GAIT DISTURBANCE [None]
